FAERS Safety Report 5618672-2 (Version None)
Quarter: 2008Q1

REPORT INFORMATION
  Report Type: 
  Country: None (occurrence: None)
  Receive Date: 20080205
  Receipt Date: 20080205
  Transmission Date: 20080703
  Serious: Yes (Hospitalization, Other)
  Sender: FDA-Public Use
  Company Number: None

PATIENT
  Age: 6 Year
  Sex: Female
  Weight: 21.7727 kg

DRUGS (1)
  1. VYVANSE [Suspect]
     Indication: ATTENTION DEFICIT/HYPERACTIVITY DISORDER
     Dosage: 30MG CAPSULE ONCE A DAY PO
     Route: 048
     Dates: start: 20080202, end: 20080202

REACTIONS (22)
  - ABDOMINAL PAIN UPPER [None]
  - ABNORMAL BEHAVIOUR [None]
  - AMNESIA [None]
  - ANXIETY [None]
  - CONVULSION [None]
  - CRYING [None]
  - DRY MOUTH [None]
  - DYSKINESIA [None]
  - DYSPNOEA [None]
  - EMOTIONAL DISORDER [None]
  - FEAR [None]
  - FEELING JITTERY [None]
  - HALLUCINATION, TACTILE [None]
  - HALLUCINATION, VISUAL [None]
  - HYPERHIDROSIS [None]
  - INSOMNIA [None]
  - LOGORRHOEA [None]
  - NERVOUSNESS [None]
  - PALPITATIONS [None]
  - PANIC REACTION [None]
  - SCREAMING [None]
  - TREMOR [None]
